FAERS Safety Report 11283599 (Version 2)
Quarter: 2015Q3

REPORT INFORMATION
  Report Type: Spontaneous
  Country: US (occurrence: US)
  Receive Date: 20150720
  Receipt Date: 20150821
  Transmission Date: 20151125
  Serious: Yes (Hospitalization, Other)
  Sender: FDA-Public Use
  Company Number: US-PFIZER INC-2015238049

PATIENT
  Age: 70 Year
  Sex: Female
  Weight: 71 kg

DRUGS (1)
  1. REVATIO [Suspect]
     Active Substance: SILDENAFIL CITRATE
     Indication: CARDIAC DISORDER
     Dosage: 20 MG, 2X/DAY
     Route: 048

REACTIONS (6)
  - Productive cough [Unknown]
  - Wheezing [Unknown]
  - Dyspnoea [Recovering/Resolving]
  - Product use issue [Unknown]
  - Blindness [Unknown]
  - Pneumonia [Unknown]

NARRATIVE: CASE EVENT DATE: 201508
